FAERS Safety Report 8343861-6 (Version None)
Quarter: 2012Q2

REPORT INFORMATION
  Report Type: 
  Country: None (occurrence: None)
  Receive Date: 20120508
  Receipt Date: 20120429
  Transmission Date: 20120825
  Serious: Yes (Hospitalization, Other)
  Sender: FDA-Public Use
  Company Number: US-US-EMD SERONO, INC.-7026003

PATIENT
  Sex: Female
  Weight: 48 kg

DRUGS (10)
  1. REBIF [Suspect]
     Route: 058
     Dates: start: 20110801
  2. FIORICET [Concomitant]
     Indication: MIGRAINE
  3. REBIF [Suspect]
     Route: 058
     Dates: start: 20100914
  4. REBIF [Suspect]
     Indication: MULTIPLE SCLEROSIS
     Route: 058
  5. CLONAZEPAM [Concomitant]
     Indication: PAIN
  6. REBIF [Suspect]
     Route: 058
     Dates: start: 20120429
  7. ZOLOFT [Concomitant]
     Indication: DEPRESSION
  8. FLEXERIL [Concomitant]
     Indication: MYALGIA
  9. REBIF [Suspect]
     Route: 058
  10. CLONAZEPAM [Concomitant]
     Indication: TREMOR

REACTIONS (10)
  - PROGRESSIVE MULTIPLE SCLEROSIS [None]
  - UPPER LIMB FRACTURE [None]
  - CONCUSSION [None]
  - TYMPANIC MEMBRANE PERFORATION [None]
  - OPTIC NEURITIS [None]
  - DEPRESSION [None]
  - FALL [None]
  - THINKING ABNORMAL [None]
  - SUICIDAL IDEATION [None]
  - SPINAL COLUMN STENOSIS [None]
